FAERS Safety Report 13390921 (Version 1)
Quarter: 2017Q1

REPORT INFORMATION
  Report Type: Spontaneous
  Country: US (occurrence: US)
  Receive Date: 20170331
  Receipt Date: 20170331
  Transmission Date: 20170429
  Serious: Yes (Life-Threatening, Other)
  Sender: FDA-Public Use
  Company Number: None

PATIENT
  Age: 46 Year
  Sex: Female
  Weight: 49.05 kg

DRUGS (1)
  1. MS CONTIN [Suspect]
     Active Substance: MORPHINE SULFATE
     Indication: PAIN
     Route: 048
     Dates: start: 20170329, end: 20170330

REACTIONS (4)
  - Gait disturbance [None]
  - Drug dispensing error [None]
  - Wrong drug administered [None]
  - Lethargy [None]

NARRATIVE: CASE EVENT DATE: 20170330
